FAERS Safety Report 4983865-4 (Version None)
Quarter: 2006Q2

REPORT INFORMATION
  Report Type: 
  Country: None (occurrence: None)
  Receive Date: 20060426
  Receipt Date: 20060104
  Transmission Date: 20061013
  Serious: Yes (Hospitalization)
  Sender: FDA-Public Use
  Company Number: US-MERCK-0601USA00378

PATIENT
  Age: 45 Year
  Sex: Male

DRUGS (1)
  1. VIOXX [Suspect]
     Route: 048
     Dates: start: 20010401, end: 20040901

REACTIONS (4)
  - ANAEMIA [None]
  - CARDIAC ARREST [None]
  - CHEST PAIN [None]
  - MYOCARDIAL INFARCTION [None]
